FAERS Safety Report 9638394 (Version 2)
Quarter: 2013Q4

REPORT INFORMATION
  Report Type: Spontaneous
  Country: BR (occurrence: BR)
  Receive Date: 20131022
  Receipt Date: 20131022
  Transmission Date: 20140711
  Serious: Yes (Other)
  Sender: FDA-Public Use
  Company Number: BR-ABBVIE-13P-020-1129365-00

PATIENT
  Age: 59 Year
  Sex: Female
  Weight: 88 kg

DRUGS (11)
  1. HUMIRA [Suspect]
     Indication: ANKYLOSING SPONDYLITIS
     Route: 058
     Dates: start: 20120828, end: 20130815
  2. HUMIRA [Suspect]
  3. HYDROCHLOROTHIAZIDE [Concomitant]
     Indication: HYPERTENSION
     Route: 048
     Dates: start: 1993
  4. ATENOLOL [Concomitant]
     Indication: HYPERTENSION
     Route: 048
     Dates: start: 2003
  5. LOSARTAN [Concomitant]
     Indication: HYPERTENSION
     Route: 048
     Dates: start: 1993
  6. AMATO [Concomitant]
     Indication: ILL-DEFINED DISORDER
     Route: 048
     Dates: start: 201207
  7. SINVASTATINA [Concomitant]
     Indication: BLOOD CHOLESTEROL ABNORMAL
  8. VIMOVO [Concomitant]
     Indication: GASTRIC DISORDER
     Route: 048
     Dates: end: 20130927
  9. VIMOVO [Concomitant]
     Dates: start: 20131005
  10. AMATO [Concomitant]
     Indication: ARRHYTHMIA
     Dosage: 50MG NIGHTLY
     Route: 048
     Dates: start: 2012
  11. CALCIUM [Concomitant]
     Indication: PRODUCT USED FOR UNKNOWN INDICATION

REACTIONS (11)
  - Benign neoplasm of thyroid gland [Recovered/Resolved]
  - Nodule [Not Recovered/Not Resolved]
  - Pain [Recovering/Resolving]
  - Arrhythmia [Not Recovered/Not Resolved]
  - Liver function test abnormal [Not Recovered/Not Resolved]
  - Headache [Unknown]
  - Malaise [Unknown]
  - Weight decreased [Unknown]
  - Weight increased [Unknown]
  - Abdominal pain [Recovered/Resolved]
  - Back pain [Recovered/Resolved]
